FAERS Safety Report 13622345 (Version 1)
Quarter: 2017Q2

REPORT INFORMATION
  Report Type: Spontaneous
  Country: US (occurrence: US)
  Receive Date: 20170607
  Receipt Date: 20170607
  Transmission Date: 20170830
  Serious: No
  Sender: FDA-Public Use
  Company Number: US-ROCHE-1783300

PATIENT
  Sex: Female

DRUGS (7)
  1. CELLCEPT [Suspect]
     Active Substance: MYCOPHENOLATE MOFETIL\MYCOPHENOLATE MOFETIL HYDROCHLORIDE
     Indication: PULMONARY FIBROSIS
     Dosage: ONCE IN THE MORNING AND ONCE IN THE EVENING
     Route: 048
     Dates: start: 201505
  2. SULFAMETHOXAZOLE/TRIMETHOPRIM [Suspect]
     Active Substance: SULFAMETHOXAZOLE\TRIMETHOPRIM
     Indication: PRODUCT USED FOR UNKNOWN INDICATION
     Route: 065
  3. PREDNISONE. [Concomitant]
     Active Substance: PREDNISONE
     Route: 065
  4. BACTRIM [Concomitant]
     Active Substance: SULFAMETHOXAZOLE\TRIMETHOPRIM
     Route: 065
  5. RECLAST [Concomitant]
     Active Substance: ZOLEDRONIC ACID
  6. CELLCEPT [Suspect]
     Active Substance: MYCOPHENOLATE MOFETIL\MYCOPHENOLATE MOFETIL HYDROCHLORIDE
     Indication: INTERSTITIAL LUNG DISEASE
     Dosage: 2000 A DAY, SHE TOOK TWO FIVES IN THE MORNING AND TWO FIVES IN THE EVENING
     Route: 048
     Dates: start: 201506
  7. CELLCEPT [Suspect]
     Active Substance: MYCOPHENOLATE MOFETIL\MYCOPHENOLATE MOFETIL HYDROCHLORIDE
     Dosage: 2000 MG A DAY BECAUSE SHE TOOK 2 TABLETS TWICE A DAY
     Route: 048
     Dates: start: 201511

REACTIONS (6)
  - Oxygen saturation decreased [Unknown]
  - Dry throat [Not Recovered/Not Resolved]
  - Vomiting [Unknown]
  - Fatigue [Unknown]
  - Tremor [Not Recovered/Not Resolved]
  - Wrong technique in product usage process [Unknown]
